FAERS Safety Report 6187069-1 (Version None)
Quarter: 2009Q2

REPORT INFORMATION
  Report Type: 
  Country: None (occurrence: None)
  Receive Date: 20090512
  Receipt Date: 20090507
  Transmission Date: 20091009
  Serious: Yes (Other)
  Sender: FDA-Public Use
  Company Number: GR-PFIZER INC-2009210119

PATIENT
  Age: 74 Year

DRUGS (6)
  1. ISOSORBIDE MONONITRATE [Suspect]
  2. DILTIAZEM HCL [Suspect]
  3. ATORVASTATIN CALCIUM [Suspect]
  4. ACETYLSALICYLIC ACID [Suspect]
  5. PARSTELIN TAB [Suspect]
  6. PAROXETINE [Suspect]

REACTIONS (1)
  - PEMPHIGOID [None]
